FAERS Safety Report 16058114 (Version 1)
Quarter: 2019Q1

REPORT INFORMATION
  Report Type: Spontaneous
  Country: FR (occurrence: FR)
  Receive Date: 20190311
  Receipt Date: 20190311
  Transmission Date: 20190418
  Serious: Yes (Other)
  Sender: FDA-Public Use
  Company Number: FR-TEVA-610229ISR

PATIENT
  Sex: Female

DRUGS (1)
  1. COPAXONE [Suspect]
     Active Substance: GLATIRAMER ACETATE
     Indication: MULTIPLE SCLEROSIS
     Dosage: COPAXONE 20 MG/ML WITH THE AUTOJECT AT 10 MM
     Route: 058
     Dates: start: 20091101

REACTIONS (3)
  - Injection site necrosis [Recovered/Resolved]
  - Injection site discharge [Recovered/Resolved with Sequelae]
  - Injection site scab [Recovered/Resolved]

NARRATIVE: CASE EVENT DATE: 2015
